FAERS Safety Report 15357980 (Version 1)
Quarter: 2018Q3

REPORT INFORMATION
  Report Type: Report from Study
  Country: IT (occurrence: IT)
  Receive Date: 20180906
  Receipt Date: 20180906
  Transmission Date: 20181010
  Serious: Yes (Hospitalization)
  Sender: FDA-Public Use
  Company Number: IT-BAYER-2018-162676

PATIENT
  Age: 72 Year
  Sex: Male

DRUGS (14)
  1. EN [Concomitant]
     Active Substance: DELORAZEPAM
     Indication: ANXIOLYTIC THERAPY
     Dosage: 2 MG, QD
     Route: 048
  2. LASIX [Concomitant]
     Active Substance: FUROSEMIDE
     Indication: HYPERTENSION
     Dosage: 25 MG, QD
     Route: 048
  3. CONGESCOR [Concomitant]
     Active Substance: BISOPROLOL
     Indication: HYPERTENSION
     Dosage: 5 MG, QD
     Route: 048
  4. TORVAST [Concomitant]
     Active Substance: ATORVASTATIN
     Indication: HYPERCHOLESTEROLAEMIA
     Dosage: 20 MG, QD
     Route: 048
  5. LUVION [Concomitant]
     Indication: HYPERTENSION
     Dosage: 25 MG, QD
     Route: 048
  6. CARDIOASPIRIN [Suspect]
     Active Substance: ASPIRIN
     Indication: ANTIPLATELET THERAPY
     Dosage: 100 MG, QD
     Route: 048
  7. ENAPREN [Concomitant]
     Active Substance: ENALAPRIL MALEATE
     Indication: HYPERTENSION
     Dosage: 20 MG, QD
     Route: 048
  8. DIAMICRON [Concomitant]
     Active Substance: GLICLAZIDE
     Indication: TYPE 2 DIABETES MELLITUS
     Dosage: 30 MG, QD
     Route: 048
  9. COUMADIN [Suspect]
     Active Substance: WARFARIN SODIUM
     Indication: ATRIAL FIBRILLATION
     Dosage: 1 DF, PRN
     Route: 048
     Dates: start: 20141217, end: 20180807
  10. LASIX [Concomitant]
     Active Substance: FUROSEMIDE
     Indication: HYPERTENSION
     Dosage: 0.25 DF, QD
     Route: 048
  11. ZYLORIC [Concomitant]
     Active Substance: ALLOPURINOL
     Indication: HYPERURICAEMIA
     Dosage: 150 MG, QD
     Route: 048
  12. AMIODARONE [Concomitant]
     Active Substance: AMIODARONE
     Indication: ARRHYTHMIA
     Dosage: 200 MG, QD
     Route: 048
  13. SEACOR [Concomitant]
     Active Substance: OMEGA-3 FATTY ACIDS
     Indication: HYPERCHOLESTEROLAEMIA
     Dosage: 1 G, QD
     Route: 048
  14. EUTIROX [Concomitant]
     Active Substance: LEVOTHYROXINE SODIUM
     Indication: HYPOTHYROIDISM
     Dosage: 75 ?G, QD
     Route: 048

REACTIONS (3)
  - Accident [Not Recovered/Not Resolved]
  - Subdural haematoma [Not Recovered/Not Resolved]
  - Malaise [Not Recovered/Not Resolved]

NARRATIVE: CASE EVENT DATE: 20180807
